FAERS Safety Report 23285536 (Version 4)
Quarter: 2023Q4

REPORT INFORMATION
  Report Type: Other
  Country: DE (occurrence: None)
  Receive Date: 20231212
  Receipt Date: 20231225
  Transmission Date: 20240110
  Serious: Yes (Hospitalization)
  Sender: FDA-Public Use
  Company Number: DE-ROCHE-3467695

PATIENT
  Age: 43 Year
  Sex: Male
  Weight: 74 kg

DRUGS (14)
  1. OCRELIZUMAB [Suspect]
     Active Substance: OCRELIZUMAB
     Indication: Relapsing multiple sclerosis
     Route: 042
     Dates: start: 20230623
  2. OCRELIZUMAB [Suspect]
     Active Substance: OCRELIZUMAB
     Route: 042
     Dates: start: 20230707
  3. PREDNISOLONE [Suspect]
     Active Substance: PREDNISOLONE
     Indication: Multiple sclerosis
     Dosage: HIGH DOSE (NOS)
     Route: 042
     Dates: start: 20231123, end: 20231126
  4. QUETIAPINE [Concomitant]
     Active Substance: QUETIAPINE
     Indication: Post-traumatic stress disorder
     Route: 048
     Dates: start: 2021
  5. FLUOXETINE HYDROCHLORIDE [Concomitant]
     Active Substance: FLUOXETINE HYDROCHLORIDE
     Indication: Post-traumatic stress disorder
     Route: 048
     Dates: start: 2021
  6. CHOLECALCIFEROL [Concomitant]
     Active Substance: CHOLECALCIFEROL
     Indication: Prophylaxis
     Dosage: DOSE: 20000?DOSE FREQUENCY: QS (EVERY WEEK)
     Route: 048
     Dates: start: 202306
  7. PANTOPRAZOLE SODIUM [Concomitant]
     Active Substance: PANTOPRAZOLE SODIUM
     Dosage: DOSE: 40?DOSE FREQUENCY: PRN (AS NEEDED)
     Route: 048
     Dates: start: 202302
  8. THOMAPYRIN CLASSIC [Concomitant]
     Indication: Headache
     Dosage: DOSE: 1?DOSE FREQUENCY: PRN (AS NEEDED)
     Route: 048
     Dates: start: 2020
  9. DEXAMETHASONE [Concomitant]
     Active Substance: DEXAMETHASONE
     Indication: Prophylaxis
     Dosage: DOSE FREQUENCY: ONCE
     Route: 042
     Dates: start: 20230623, end: 20230623
  10. DIMETHINDENE [Concomitant]
     Active Substance: DIMETHINDENE
     Indication: Prophylaxis
     Dosage: DOSE FREQUENCY: ONCE
     Route: 042
     Dates: start: 20230623, end: 20230623
  11. DIMETHINDENE [Concomitant]
     Active Substance: DIMETHINDENE
     Dosage: DOSE FREQUENCY: ONCE
     Route: 042
     Dates: start: 20230707, end: 20230707
  12. ACETAMINOPHEN [Concomitant]
     Active Substance: ACETAMINOPHEN
     Indication: Prophylaxis
     Dosage: DOSE FREQUENCY: ONCE
     Route: 048
     Dates: start: 20230623, end: 20230623
  13. ACETAMINOPHEN [Concomitant]
     Active Substance: ACETAMINOPHEN
     Dosage: DOSE FREQUENCY: ONCE
     Route: 048
     Dates: start: 20230707, end: 20230707
  14. METHYLPREDNISOLONE [Concomitant]
     Active Substance: METHYLPREDNISOLONE
     Indication: Prophylaxis
     Dosage: DOSE FREQUENCY: ONCE
     Route: 042
     Dates: start: 20230707, end: 20230707

REACTIONS (2)
  - Multiple sclerosis relapse [Recovered/Resolved]
  - COVID-19 [Not Recovered/Not Resolved]

NARRATIVE: CASE EVENT DATE: 20231123
